FAERS Safety Report 11442031 (Version 3)
Quarter: 2016Q1

REPORT INFORMATION
  Report Type: Spontaneous
  Country: US (occurrence: US)
  Receive Date: 20150901
  Receipt Date: 20160222
  Transmission Date: 20160525
  Serious: No
  Sender: FDA-Public Use
  Company Number: US-PFIZER INC-2015272997

PATIENT
  Age: 71 Year
  Sex: Male
  Weight: 79 kg

DRUGS (10)
  1. SUTENT [Suspect]
     Active Substance: SUNITINIB MALATE
     Dosage: 25 MG, ONCE DAILY, 4 WEEKS ON AND 2 WEEKS OFF
     Route: 048
     Dates: end: 20150802
  2. AMLODIPINE BESYLATE. [Concomitant]
     Active Substance: AMLODIPINE BESYLATE
     Dosage: 2.5 MG, 1X/DAY
  3. TYLENOL [Concomitant]
     Active Substance: ACETAMINOPHEN
     Dosage: UNK
  4. SAW PALMETTO [Concomitant]
     Active Substance: SAW PALMETTO
  5. IMODIUM A-D [Concomitant]
     Active Substance: LOPERAMIDE HYDROCHLORIDE
     Dosage: UNK
  6. SUTENT [Suspect]
     Active Substance: SUNITINIB MALATE
     Indication: RENAL CELL CARCINOMA STAGE IV
     Dosage: 50 MG, ONCE DAILY, 4 WEEKS ON AND 2 WEEKS OFF
     Route: 048
     Dates: start: 2014
  7. PRILOSEC [Concomitant]
     Active Substance: OMEPRAZOLE MAGNESIUM
     Dosage: 20 MG, 1X/DAY
  8. LISINOPRIL HCTZ [Concomitant]
     Active Substance: HYDROCHLOROTHIAZIDE\LISINOPRIL
     Dosage: (LISINOPRIL 20 MG/HYDROCHLOROTHIAZIDE 12.5MG),),1X/DAY
  9. METOPROLOL TARTRATE. [Concomitant]
     Active Substance: METOPROLOL TARTRATE
     Dosage: 12.5 MG, 2X/DAY
  10. ATORVASTATIN CALCIUM. [Concomitant]
     Active Substance: ATORVASTATIN CALCIUM
     Dosage: 40 MG, 1X/DAY

REACTIONS (11)
  - Diarrhoea [Recovering/Resolving]
  - Platelet count decreased [Unknown]
  - Weight decreased [Unknown]
  - Disease progression [Unknown]
  - Malaise [Unknown]
  - Fatigue [Unknown]
  - Renal cell carcinoma stage IV [Unknown]
  - Palmar-plantar erythrodysaesthesia syndrome [Unknown]
  - Dysgeusia [Unknown]
  - Decreased appetite [Unknown]
  - Dehydration [Unknown]
